FAERS Safety Report 8433961-4 (Version None)
Quarter: 2012Q2

REPORT INFORMATION
  Report Type: 
  Country: None (occurrence: None)
  Receive Date: 20120613
  Receipt Date: 20120605
  Transmission Date: 20120825
  Serious: Yes (Death, Hospitalization, Other)
  Sender: FDA-Public Use
  Company Number: US-MILLENNIUM PHARMACEUTICALS, INC.-2012-04058

PATIENT

DRUGS (6)
  1. CYCLOPHOSPHAMIDE [Suspect]
     Indication: MULTIPLE MYELOMA
     Dosage: 300 MG/M2, CYCLIC
     Route: 048
  2. PROTON PUMP INHIBITORS [Concomitant]
     Indication: PROPHYLAXIS
  3. QUINOLONE ANTIBACTERIALS [Concomitant]
     Indication: PROPHYLAXIS
  4. VELCADE [Suspect]
     Indication: MULTIPLE MYELOMA
     Dosage: 1.3 MG/M2, CYCLIC
     Route: 042
  5. DEXAMETHASONE [Suspect]
     Indication: MULTIPLE MYELOMA
     Dosage: 40 MG, CYCLIC
     Route: 048
  6. ACYCLOVIR [Concomitant]
     Indication: PROPHYLAXIS

REACTIONS (2)
  - FEMUR FRACTURE [None]
  - FAT EMBOLISM [None]
